FAERS Safety Report 5713246-7 (Version None)
Quarter: 2008Q2

REPORT INFORMATION
  Report Type: 
  Country: None (occurrence: None)
  Receive Date: 20080422
  Receipt Date: 20080410
  Transmission Date: 20081010
  Serious: Yes (Other)
  Sender: FDA-Public Use
  Company Number: US-PFIZER INC-2008020163

PATIENT
  Sex: Female
  Weight: 70.8 kg

DRUGS (6)
  1. CARDURA [Suspect]
     Indication: HYPERTENSION
     Route: 048
  2. CRESTOR [Suspect]
     Indication: BLOOD CHOLESTEROL INCREASED
     Route: 048
  3. METOPROLOL TARTRATE [Concomitant]
  4. SYNTHROID [Concomitant]
  5. NORVASC [Concomitant]
     Dosage: DAILY DOSE:2.5MG
  6. ASPIRIN [Concomitant]

REACTIONS (8)
  - BODY HEIGHT DECREASED [None]
  - DIZZINESS [None]
  - DRY SKIN [None]
  - GENERAL PHYSICAL HEALTH DETERIORATION [None]
  - MENTAL IMPAIRMENT [None]
  - PRURITUS [None]
  - SKIN LESION [None]
  - SOMNOLENCE [None]
